FAERS Safety Report 4335811-4 (Version None)
Quarter: 2004Q2

REPORT INFORMATION
  Report Type: 
  Country: None (occurrence: None)
  Receive Date: 20040409
  Receipt Date: 20040401
  Transmission Date: 20050107
  Serious: Yes (Other)
  Sender: FDA-Public Use
  Company Number: PHEH2004US03864

PATIENT
  Age: 60 Year
  Sex: Male
  Weight: 91 kg

DRUGS (9)
  1. GLEEVEC [Suspect]
     Indication: GASTROINTESTINAL STROMAL TUMOUR
     Dosage: 400 MG, QD
     Dates: start: 20030303
  2. GLEEVEC [Suspect]
     Dosage: 400 MG, BID
     Route: 048
     Dates: start: 20030319
  3. GLEEVEC [Suspect]
     Dosage: 600 MG, QD
     Route: 048
  4. INSULIN SUSPENSION, NPH [Concomitant]
     Dosage: 42 IU, UNK
     Route: 058
  5. INSULIN, PORK [Concomitant]
     Dosage: 20 IU, UNK
     Route: 058
  6. FOLIC ACID [Concomitant]
     Dosage: 1 MG, UNK
     Route: 048
  7. PRAVACHOL [Concomitant]
     Dosage: 20 MG, QD
     Route: 048
  8. METRONIDAZOLE [Concomitant]
     Dosage: 750 MG, QD
     Route: 048
  9. ACETAMINOPHEN [Concomitant]
     Dosage: 500 MG, UNK
     Route: 048

REACTIONS (3)
  - ARTERIAL DISORDER [None]
  - CHEST PAIN [None]
  - TREATMENT NONCOMPLIANCE [None]
